FAERS Safety Report 9448868 (Version 1)
Quarter: 2013Q3

REPORT INFORMATION
  Report Type: Report from Study
  Country: GB (occurrence: GB)
  Receive Date: 20130808
  Receipt Date: 20130808
  Transmission Date: 20140515
  Serious: Yes (Hospitalization)
  Sender: FDA-Public Use
  Company Number: GB-ROCHE-1258861

PATIENT
  Sex: Female

DRUGS (3)
  1. TOCILIZUMAB [Suspect]
     Indication: RHEUMATOID ARTHRITIS
     Route: 065
     Dates: start: 20110520
  2. HYDROXYCHLOROQUINE [Concomitant]
     Dosage: STARTED PRE TOCILIZUMAB
     Route: 065
  3. METHOTREXATE [Concomitant]
     Route: 065
     Dates: start: 20100817

REACTIONS (1)
  - Femur fracture [Unknown]
